FAERS Safety Report 8282378-4 (Version None)
Quarter: 2012Q2

REPORT INFORMATION
  Report Type: 
  Country: None (occurrence: None)
  Receive Date: 20120413
  Receipt Date: 20120405
  Transmission Date: 20120825
  Serious: Yes (Other)
  Sender: FDA-Public Use
  Company Number: US-BAYER-2012-017933

PATIENT
  Age: 29 Year
  Sex: Female
  Weight: 48.073 kg

DRUGS (1)
  1. MIRENA [Suspect]
     Indication: CONTRACEPTION
     Dosage: UNK
     Route: 015
     Dates: start: 20120216, end: 20120216

REACTIONS (3)
  - DEVICE DISLOCATION [None]
  - PROCEDURAL PAIN [None]
  - DEVICE DEPLOYMENT ISSUE [None]
